FAERS Safety Report 10960079 (Version 2)
Quarter: 2015Q2

REPORT INFORMATION
  Report Type: Report from Study
  Country: CA (occurrence: CA)
  Receive Date: 20150327
  Receipt Date: 20150407
  Transmission Date: 20150821
  Serious: Yes (Hospitalization, Other)
  Sender: FDA-Public Use
  Company Number: CA-AMGEN-CANSL2015028519

PATIENT
  Age: 40 Year
  Sex: Female

DRUGS (1)
  1. XGEVA [Suspect]
     Active Substance: DENOSUMAB
     Indication: BREAST CANCER
     Dosage: 120MG/1.7 ML, UNK
     Route: 065
     Dates: start: 20130419

REACTIONS (2)
  - Bile duct obstruction [Recovering/Resolving]
  - Metastasis [Unknown]
